FAERS Safety Report 16998908 (Version 1)
Quarter: 2019Q4

REPORT INFORMATION
  Report Type: Spontaneous
  Country: US (occurrence: US)
  Receive Date: 20191105
  Receipt Date: 20191105
  Transmission Date: 20200122
  Serious: No
  Sender: FDA-Public Use
  Company Number: None

PATIENT
  Sex: Male
  Weight: 7.2 kg

DRUGS (1)
  1. RANITIDINE. [Suspect]
     Active Substance: RANITIDINE
     Indication: GASTROOESOPHAGEAL REFLUX DISEASE
     Dates: start: 20190527, end: 20191104

REACTIONS (5)
  - Pain [None]
  - Condition aggravated [None]
  - Gastrooesophageal reflux disease [None]
  - Drug ineffective [None]
  - Insomnia [None]
